FAERS Safety Report 21904278 (Version 2)
Quarter: 2023Q1

REPORT INFORMATION
  Report Type: Report from Study
  Country: PT (occurrence: KR)
  Receive Date: 20230124
  Receipt Date: 20230307
  Transmission Date: 20230417
  Serious: Yes (Other)
  Sender: FDA-Public Use
  Company Number: KR-ZBN-001-PMS-S53001-01

PATIENT
  Sex: Male
  Weight: 77.6 kg

DRUGS (18)
  1. ESLICARBAZEPINE ACETATE [Suspect]
     Active Substance: ESLICARBAZEPINE ACETATE
     Indication: Epilepsy
     Dosage: 400 MILLIGRAM, 1X / DAY
     Route: 048
     Dates: start: 20221215, end: 20221221
  2. ESLICARBAZEPINE ACETATE [Suspect]
     Active Substance: ESLICARBAZEPINE ACETATE
     Dosage: 800 MILLIGRAM, 1X / DAY
     Route: 048
     Dates: start: 20221222, end: 20230110
  3. LYRICA [Concomitant]
     Active Substance: PREGABALIN
     Indication: Paraesthesia
     Dosage: 75 MILLIGRAM, 0.5D
     Route: 048
     Dates: start: 20221125, end: 20221215
  4. LYRICA [Concomitant]
     Active Substance: PREGABALIN
     Dosage: 75 MILLIGRAM, DAILY
     Route: 048
     Dates: start: 20221220, end: 20230110
  5. Dong a gaster [Concomitant]
     Indication: Dyspepsia
     Dosage: 20 MILLIGRAM, 0.5 D
     Route: 048
     Dates: start: 20221125, end: 20221220
  6. JANUMET [Concomitant]
     Active Substance: METFORMIN HYDROCHLORIDE\SITAGLIPTIN PHOSPHATE
     Indication: Diabetes mellitus
     Dosage: UNK, 50/500 MG, 1X / DAY
     Route: 048
     Dates: start: 2015, end: 20221221
  7. JANUMET XR [Concomitant]
     Active Substance: METFORMIN HYDROCHLORIDE\SITAGLIPTIN PHOSPHATE
     Indication: Diabetes mellitus
     Dosage: UNK,50/1000 MG, 1X / DAY
     Route: 048
     Dates: start: 2015, end: 20221221
  8. NEUROPACID OD [Concomitant]
     Indication: Diabetes mellitus
     Dosage: 600 MILLIGRAM, 1X / DAY
     Route: 048
     Dates: start: 2015, end: 20221221
  9. TGFENON [Concomitant]
     Indication: Dyslipidaemia
     Dosage: 135 MILLIGRAM, 1X / DAY
     Route: 048
     Dates: start: 2019, end: 20221221
  10. LYRICA [Concomitant]
     Active Substance: PREGABALIN
     Indication: Paraesthesia
     Dosage: 150 MILLIGRAM, 0.5 D
     Route: 048
     Dates: start: 20221215, end: 20221219
  11. LYRICA [Concomitant]
     Active Substance: PREGABALIN
     Dosage: 150 MILLIGRAM, 1X / DAY
     Route: 048
     Dates: start: 20221220, end: 20230110
  12. AMARYL MEX [Concomitant]
     Indication: Diabetes mellitus
     Dosage: UNK, 2/500 MG, 2X / DAY
     Route: 048
     Dates: start: 20221221, end: 20230104
  13. LAMICTAL [Concomitant]
     Active Substance: LAMOTRIGINE
     Indication: Epilepsy
     Dosage: 25 MILLIGRAM, 0.5 D
     Route: 048
     Dates: start: 20230110
  14. AMARYL [Concomitant]
     Active Substance: GLIMEPIRIDE
     Indication: Diabetes mellitus
     Dosage: 2 MILLIGRAM, 1X / DAY
     Route: 048
     Dates: start: 20230104
  15. METFORMIN HYDROCHLORIDE\PIOGLITAZONE HYDROCHLORIDE [Concomitant]
     Active Substance: METFORMIN HYDROCHLORIDE\PIOGLITAZONE HYDROCHLORIDE
     Indication: Diabetes mellitus
     Dosage: 15/850 MG, 1X / DAY
     Route: 048
  16. DIABEX [Concomitant]
     Active Substance: METFORMIN HYDROCHLORIDE
     Indication: Diabetes mellitus
     Dosage: 1000 MILLIGRAM, 1X / DAY
     Route: 048
     Dates: start: 20230104
  17. FENOFIBRATE\PRAVASTATIN [Concomitant]
     Active Substance: FENOFIBRATE\PRAVASTATIN
     Indication: Dyslipidaemia
     Dosage: 40 MILLIGRAM, 1X / DAY
     Route: 048
     Dates: start: 20230104
  18. THIOCTACID HR [Concomitant]
     Indication: Paraesthesia
     Dosage: 600 MILLIGRAM, 1X / DAY
     Route: 048
     Dates: start: 20230104

REACTIONS (2)
  - Suicidal behaviour [Recovered/Resolved]
  - Depressed mood [Recovered/Resolved]

NARRATIVE: CASE EVENT DATE: 20230103
